FAERS Safety Report 17090241 (Version 1)
Quarter: 2019Q4

REPORT INFORMATION
  Report Type: Spontaneous
  Country: US (occurrence: US)
  Receive Date: 20191129
  Receipt Date: 20191129
  Transmission Date: 20200122
  Serious: No
  Sender: FDA-Public Use
  Company Number: US-UCBSA-2018016558

PATIENT
  Age: 4 Decade
  Sex: Female

DRUGS (5)
  1. GABAPENTIN. [Concomitant]
     Active Substance: GABAPENTIN
     Indication: PSYCHOGENIC SEIZURE
     Dosage: 300 MG, 3X/DAY (TID)
  2. VENLAFAXINE [Concomitant]
     Active Substance: VENLAFAXINE HYDROCHLORIDE
     Indication: PSYCHOGENIC SEIZURE
     Dosage: 37.5 MG, ONCE DAILY (QD)
  3. LEVETIRACETAM. [Suspect]
     Active Substance: LEVETIRACETAM
     Indication: PSYCHOGENIC SEIZURE
     Dosage: 1000 MG, 2X/DAY (BID)
  4. LEVETIRACETAM. [Suspect]
     Active Substance: LEVETIRACETAM
     Indication: OFF LABEL USE
  5. LORAZEPAM. [Concomitant]
     Active Substance: LORAZEPAM
     Indication: PSYCHOGENIC SEIZURE
     Dosage: 0.5 MG, 3X/DAY (TID)

REACTIONS (1)
  - No adverse event [Unknown]
